FAERS Safety Report 7724810-8 (Version None)
Quarter: 2011Q3

REPORT INFORMATION
  Report Type: 
  Country: None (occurrence: None)
  Receive Date: 20110901
  Receipt Date: 20110826
  Transmission Date: 20111222
  Serious: Yes (Other)
  Sender: FDA-Public Use
  Company Number: US-GENENTECH-320689

PATIENT
  Sex: Female

DRUGS (1)
  1. XOLAIR [Suspect]
     Indication: PRODUCT USED FOR UNKNOWN INDICATION
     Dosage: 375 MG, Q14D
     Route: 058
     Dates: start: 20110607, end: 20110607

REACTIONS (4)
  - PRURITUS [None]
  - NAUSEA [None]
  - MALAISE [None]
  - INJECTION SITE REACTION [None]
